FAERS Safety Report 9833083 (Version 2)
Quarter: 2014Q1

REPORT INFORMATION
  Report Type: Spontaneous
  Country: TR (occurrence: TR)
  Receive Date: 20140121
  Receipt Date: 20140206
  Transmission Date: 20141002
  Serious: Yes (Other)
  Sender: FDA-Public Use
  Company Number: TR-BAXTER-2014BAX002213

PATIENT
  Age: 37 Year
  Sex: Female

DRUGS (1)
  1. KIOVIG 2.5/25 ML IV INF?ZYON I?IN ??ZELTI I?EREN FLAKON [Suspect]
     Indication: GUILLAIN-BARRE SYNDROME
     Route: 042

REACTIONS (1)
  - Thrombocytopenia [Recovered/Resolved]
